FAERS Safety Report 7850869-3 (Version None)
Quarter: 2011Q4

REPORT INFORMATION
  Report Type: 
  Country: None (occurrence: None)
  Receive Date: 20111026
  Receipt Date: 20111019
  Transmission Date: 20120403
  Serious: Yes (Hospitalization, Other)
  Sender: FDA-Public Use
  Company Number: BE-ABBOTT-11P-013-0866497-00

PATIENT
  Sex: Female

DRUGS (2)
  1. HUMIRA [Suspect]
     Indication: RHEUMATOID ARTHRITIS
     Dates: start: 20060120
  2. METHOTREXATE [Suspect]
     Indication: RHEUMATOID ARTHRITIS
     Dates: start: 20030101, end: 20100501

REACTIONS (7)
  - HERNIA [None]
  - PULMONARY FIBROSIS [None]
  - BRONCHIECTASIS [None]
  - ULCER [None]
  - IRON DEFICIENCY ANAEMIA [None]
  - MELAENA [None]
  - ABDOMINAL PAIN UPPER [None]
